FAERS Safety Report 8629893 (Version 4)
Quarter: 2013Q1

REPORT INFORMATION
  Report Type: Spontaneous
  Country: US (occurrence: None)
  Receive Date: 20120611
  Receipt Date: 20130315
  Transmission Date: 20140127
  Serious: Yes (Other)
  Sender: FDA-Public Use
  Company Number: ADR-2012-01034

PATIENT
  Sex: Female

DRUGS (4)
  1. BACLOFEN [Suspect]
  2. BACLOFEN [Suspect]
     Indication: POST LAMINECTOMY SYNDROME
  3. MORPHINE SULFATE [Concomitant]
  4. CLONIDINE [Concomitant]

REACTIONS (7)
  - DEVICE MALFUNCTION [None]
  - NAUSEA [None]
  - CHILLS [None]
  - PAIN [None]
  - CONDITION AGGRAVATED [None]
  - YAWNING [None]
  - DEVICE DAMAGE [None]
